FAERS Safety Report 5160577-8 (Version None)
Quarter: 2006Q4

REPORT INFORMATION
  Report Type: 
  Country: None (occurrence: None)
  Receive Date: 20061121
  Receipt Date: 20061107
  Transmission Date: 20070319
  Serious: Yes (Other)
  Sender: FDA-Public Use
  Company Number: 2006137099

PATIENT
  Age: 58 Year
  Sex: Female

DRUGS (3)
  1. LYRICA [Suspect]
     Indication: NEUROPATHY PERIPHERAL
     Dosage: 225 MG (75 MG)
     Dates: start: 20060101
  2. ACIPHEX [Concomitant]
  3. ATACAND [Concomitant]

REACTIONS (6)
  - ASTHENIA [None]
  - CONDITION AGGRAVATED [None]
  - HYPOGLYCAEMIA [None]
  - INCREASED APPETITE [None]
  - MALAISE [None]
  - WEIGHT INCREASED [None]
